FAERS Safety Report 15460364 (Version 1)
Quarter: 2018Q4

REPORT INFORMATION
  Report Type: Spontaneous
  Country: JP (occurrence: JP)
  Receive Date: 20181003
  Receipt Date: 20181003
  Transmission Date: 20190204
  Serious: Yes (Hospitalization)
  Sender: FDA-Public Use
  Company Number: JP-JNJFOC-20180937060

PATIENT
  Age: 70 Year
  Sex: Male

DRUGS (5)
  1. BUTROPIUM BROMIDE [Concomitant]
     Active Substance: BUTROPIUM BROMIDE
     Route: 065
  2. ENALAPRIL MALEATE. [Concomitant]
     Active Substance: ENALAPRIL MALEATE
     Route: 065
  3. TORASEMIDE [Concomitant]
     Active Substance: TORSEMIDE
     Route: 065
  4. SUCRALFATE. [Concomitant]
     Active Substance: SUCRALFATE
     Route: 065
  5. XARELTO [Suspect]
     Active Substance: RIVAROXABAN
     Indication: INTRACARDIAC THROMBUS
     Route: 048
     Dates: start: 20180523

REACTIONS (2)
  - Cerebellar infarction [Unknown]
  - Altered state of consciousness [Unknown]

NARRATIVE: CASE EVENT DATE: 20180603
